FAERS Safety Report 10244426 (Version 1)
Quarter: 2014Q2

REPORT INFORMATION
  Report Type: Spontaneous
  Country: US (occurrence: US)
  Receive Date: 20140618
  Receipt Date: 20140618
  Transmission Date: 20141212
  Serious: No
  Sender: FDA-Public Use
  Company Number: US-009507513-1406USA008537

PATIENT
  Sex: Male

DRUGS (2)
  1. REMERON [Suspect]
     Indication: SLEEP DISORDER THERAPY
     Dosage: 15 MG TABLETS IN HALF
     Route: 048
     Dates: start: 20140606, end: 20140612
  2. REMERON [Suspect]
     Dosage: UNK
     Route: 048
     Dates: end: 20140605

REACTIONS (3)
  - Night sweats [Not Recovered/Not Resolved]
  - Hypersomnia [Not Recovered/Not Resolved]
  - Off label use [Unknown]
